FAERS Safety Report 19459522 (Version 1)
Quarter: 2021Q2

REPORT INFORMATION
  Report Type: Spontaneous
  Country: CA (occurrence: CA)
  Receive Date: 20210624
  Receipt Date: 20210624
  Transmission Date: 20210717
  Serious: Yes (Hospitalization)
  Sender: FDA-Public Use
  Company Number: CA-TEVA-2021-CA-1924595

PATIENT
  Age: 42 Year
  Sex: Male

DRUGS (3)
  1. OXALIPLATIN. [Suspect]
     Active Substance: OXALIPLATIN
     Indication: GASTRIC CANCER STAGE IV
     Route: 065
  2. 5?FU [Suspect]
     Active Substance: FLUOROURACIL
     Indication: GASTRIC CANCER STAGE IV
     Route: 065
  3. LEUCOVORIN. [Suspect]
     Active Substance: LEUCOVORIN
     Indication: GASTRIC CANCER STAGE IV
     Route: 065

REACTIONS (4)
  - Thrombocytopenia [Unknown]
  - Mucosal inflammation [Unknown]
  - Exfoliative rash [Unknown]
  - Febrile neutropenia [Unknown]
